FAERS Safety Report 8366076-4 (Version None)
Quarter: 2012Q2

REPORT INFORMATION
  Report Type: 
  Country: None (occurrence: None)
  Receive Date: 20120517
  Receipt Date: 20120510
  Transmission Date: 20120825
  Serious: Yes (Life-Threatening, Hospitalization, Congenital Anomaly)
  Sender: FDA-Public Use
  Company Number: DE-ELI_LILLY_AND_COMPANY-DE201111000636

PATIENT

DRUGS (8)
  1. FOLSAURE [Concomitant]
     Dosage: UNK
     Route: 064
     Dates: start: 20110115
  2. TRIMIPRAMINE [Concomitant]
     Dosage: 75 MG, QD
     Route: 064
     Dates: start: 20101218, end: 20110909
  3. CYMBALTA [Suspect]
     Dosage: 60 MG, QD
     Route: 064
     Dates: end: 20110201
  4. TRIMIPRAMINE [Concomitant]
     Indication: DEPRESSION
     Dosage: 75 MG, QD
     Route: 064
     Dates: start: 20101218, end: 20110909
  5. FOLSAURE [Concomitant]
     Dosage: UNK
     Route: 064
     Dates: start: 20110115
  6. CYMBALTA [Suspect]
     Dosage: 60 MG, QD
     Route: 064
     Dates: end: 20110201
  7. CYMBALTA [Suspect]
     Indication: DEPRESSION
     Dosage: 30 MG, QD
     Route: 064
  8. CYMBALTA [Suspect]
     Dosage: 30 MG, QD
     Route: 064

REACTIONS (13)
  - CONGENITAL HYDROCEPHALUS [None]
  - ARNOLD-CHIARI MALFORMATION [None]
  - HYPOVENTILATION NEONATAL [None]
  - CONGENITAL CENTRAL NERVOUS SYSTEM ANOMALY [None]
  - APNOEA [None]
  - BRADYCARDIA [None]
  - MICROGNATHIA [None]
  - PIERRE ROBIN SYNDROME [None]
  - CLEFT PALATE [None]
  - ENCEPHALOCELE [None]
  - SPINA BIFIDA [None]
  - POST PROCEDURAL COMPLICATION [None]
  - FOETAL EXPOSURE DURING PREGNANCY [None]
